FAERS Safety Report 6911260-7 (Version None)
Quarter: 2010Q3

REPORT INFORMATION
  Report Type: 
  Country: None (occurrence: None)
  Receive Date: 20100806
  Receipt Date: 20100726
  Transmission Date: 20110219
  Serious: Yes (Death, Other)
  Sender: FDA-Public Use
  Company Number: PHHY2009JP19704

PATIENT
  Age: 83 Year
  Sex: Female

DRUGS (3)
  1. GLEEVEC [Suspect]
     Indication: CHRONIC EOSINOPHILIC LEUKAEMIA
     Dosage: 100 MG/DAY
     Route: 048
     Dates: start: 20081123
  2. HYDROXYCARBAMIDE [Concomitant]
  3. STEROIDS NOS [Concomitant]

REACTIONS (18)
  - ANURIA [None]
  - BLOOD LACTATE DEHYDROGENASE INCREASED [None]
  - DISEASE PROGRESSION [None]
  - DISSEMINATED INTRAVASCULAR COAGULATION [None]
  - DYSPNOEA [None]
  - EOSINOPHILIC LEUKAEMIA [None]
  - GENERAL PHYSICAL HEALTH DETERIORATION [None]
  - HAEMODIALYSIS [None]
  - HAEMORRHAGE SUBCUTANEOUS [None]
  - MALIGNANT NEOPLASM PROGRESSION [None]
  - MOUTH HAEMORRHAGE [None]
  - PANCYTOPENIA [None]
  - PETECHIAE [None]
  - PULMONARY ALVEOLAR HAEMORRHAGE [None]
  - RENAL FAILURE [None]
  - RESPIRATORY FAILURE [None]
  - TUMOUR LYSIS SYNDROME [None]
  - WHITE BLOOD CELL COUNT DECREASED [None]
